FAERS Safety Report 7420336-X (Version None)
Quarter: 2011Q2

REPORT INFORMATION
  Report Type: 
  Country: None (occurrence: None)
  Receive Date: 20110406
  Receipt Date: 20110323
  Transmission Date: 20111010
  Serious: No
  Sender: FDA-Public Use
  Company Number: FK201100536

PATIENT
  Age: 45 Year
  Sex: Male
  Weight: 65 kg

DRUGS (2)
  1. GLYCOPYRROLATE [Concomitant]
  2. NEOSTIGMINE METHYLSULFATE INJECTION, USP (NEOSTIGMINE) [Suspect]
     Indication: NEUROMUSCULAR BLOCKADE REVERSAL
     Dosage: 2.5 MG

REACTIONS (6)
  - IRRITABILITY [None]
  - ACUTE RESPIRATORY DISTRESS SYNDROME [None]
  - RALES [None]
  - PULMONARY OEDEMA [None]
  - HEART RATE INCREASED [None]
  - RESTLESSNESS [None]
